FAERS Safety Report 18112821 (Version 3)
Quarter: 2021Q4

REPORT INFORMATION
  Report Type: Other
  Country: JP (occurrence: None)
  Receive Date: 20200805
  Receipt Date: 20211214
  Transmission Date: 20220303
  Serious: Yes (Hospitalization)
  Sender: FDA-Public Use
  Company Number: JP-ROCHE-2652808

PATIENT
  Age: 70 Year
  Sex: Male
  Weight: 61 kg

DRUGS (55)
  1. RITUXIMAB [Suspect]
     Active Substance: RITUXIMAB
     Indication: Prophylaxis against transplant rejection
     Route: 041
     Dates: start: 20191023, end: 20191023
  2. RITUXIMAB [Suspect]
     Active Substance: RITUXIMAB
     Route: 041
     Dates: start: 20191030, end: 20191030
  3. MEDROL [Concomitant]
     Active Substance: METHYLPREDNISOLONE
     Indication: Premedication
     Route: 048
     Dates: start: 20191023, end: 20191023
  4. MEDROL [Concomitant]
     Active Substance: METHYLPREDNISOLONE
     Route: 048
     Dates: start: 20191030, end: 20191030
  5. TACROLIMUS [Concomitant]
     Active Substance: TACROLIMUS
     Indication: Prophylaxis against transplant rejection
     Route: 048
     Dates: start: 20191028, end: 20191030
  6. TACROLIMUS [Concomitant]
     Active Substance: TACROLIMUS
     Route: 048
     Dates: start: 20191031, end: 20191031
  7. TACROLIMUS [Concomitant]
     Active Substance: TACROLIMUS
     Route: 048
     Dates: start: 20191101, end: 20191104
  8. TACROLIMUS [Concomitant]
     Active Substance: TACROLIMUS
     Route: 048
     Dates: start: 20191105, end: 20191106
  9. TACROLIMUS [Concomitant]
     Active Substance: TACROLIMUS
     Route: 048
     Dates: start: 20191107, end: 20191110
  10. TACROLIMUS [Concomitant]
     Active Substance: TACROLIMUS
     Route: 048
     Dates: start: 20191111, end: 20191117
  11. TACROLIMUS [Concomitant]
     Active Substance: TACROLIMUS
     Route: 048
     Dates: start: 20191118, end: 20191211
  12. TACROLIMUS [Concomitant]
     Active Substance: TACROLIMUS
     Route: 048
     Dates: start: 20191212, end: 20200103
  13. TACROLIMUS [Concomitant]
     Active Substance: TACROLIMUS
     Route: 048
     Dates: start: 20200104, end: 20200106
  14. TACROLIMUS [Concomitant]
     Active Substance: TACROLIMUS
     Route: 048
     Dates: start: 20200107, end: 20200108
  15. TACROLIMUS [Concomitant]
     Active Substance: TACROLIMUS
     Route: 048
     Dates: start: 20200109, end: 20200113
  16. TACROLIMUS [Concomitant]
     Active Substance: TACROLIMUS
     Route: 048
     Dates: start: 20200114, end: 20200128
  17. TACROLIMUS [Concomitant]
     Active Substance: TACROLIMUS
     Route: 048
     Dates: start: 20200129
  18. CELLCEPT [Concomitant]
     Active Substance: MYCOPHENOLATE MOFETIL
     Indication: Prophylaxis against transplant rejection
     Route: 048
     Dates: start: 20190904, end: 20190908
  19. CELLCEPT [Concomitant]
     Active Substance: MYCOPHENOLATE MOFETIL
     Route: 048
     Dates: start: 20191017, end: 20200106
  20. CELLCEPT [Concomitant]
     Active Substance: MYCOPHENOLATE MOFETIL
     Route: 048
     Dates: start: 20200107, end: 20200123
  21. CELLCEPT [Concomitant]
     Active Substance: MYCOPHENOLATE MOFETIL
     Route: 048
     Dates: start: 20200124
  22. BASILIXIMAB [Concomitant]
     Active Substance: BASILIXIMAB
     Indication: Prophylaxis against transplant rejection
     Route: 042
     Dates: start: 20191031, end: 20191031
  23. BASILIXIMAB [Concomitant]
     Active Substance: BASILIXIMAB
     Route: 042
     Dates: start: 20191104, end: 20191104
  24. ACETAMINOPHEN [Concomitant]
     Active Substance: ACETAMINOPHEN
     Indication: Premedication
     Dosage: ON 30/OCT/2019 AND 03/NOV/2019 RECEIVED ACETAMINOPHEN
     Route: 048
     Dates: start: 20191023, end: 20191103
  25. ATORVASTATIN [Concomitant]
     Active Substance: ATORVASTATIN
     Indication: Hypercholesterolaemia
     Route: 048
     Dates: start: 20191212
  26. OLOPATADINE HYDROCHLORIDE [Concomitant]
     Active Substance: OLOPATADINE HYDROCHLORIDE
     Indication: Allergy prophylaxis
     Route: 048
  27. SENNOSIDES [Concomitant]
     Active Substance: SENNOSIDES
     Indication: Constipation prophylaxis
     Route: 048
     Dates: start: 20191103, end: 20191106
  28. FERROUS SULFATE [Concomitant]
     Active Substance: FERROUS SULFATE
     Indication: Iron deficiency anaemia
     Route: 048
     Dates: start: 20191212, end: 20200430
  29. RABEPRAZOLE SODIUM [Concomitant]
     Active Substance: RABEPRAZOLE SODIUM
     Indication: Prophylaxis against gastrointestinal ulcer
     Route: 048
     Dates: start: 20191106
  30. DEQUALINIUM CHLORIDE [Concomitant]
     Active Substance: DEQUALINIUM CHLORIDE
     Indication: Infection prophylaxis
     Route: 048
     Dates: start: 20191108, end: 20191108
  31. HACHIAZULE [Concomitant]
     Indication: Stomatitis
     Route: 048
     Dates: start: 20191101
  32. VALGANCICLOVIR [Concomitant]
     Active Substance: VALGANCICLOVIR
     Indication: Infection prophylaxis
     Route: 048
     Dates: start: 20200123
  33. ATOVAQUONE [Concomitant]
     Active Substance: ATOVAQUONE
     Indication: Infection prophylaxis
     Route: 048
     Dates: start: 20191112
  34. NIFEDIPINE [Concomitant]
     Active Substance: NIFEDIPINE
     Indication: Hypertension
     Route: 048
     Dates: start: 20191031, end: 20191031
  35. GENTAMICIN SULFATE [Concomitant]
     Active Substance: GENTAMICIN SULFATE
     Indication: Infection prophylaxis
     Route: 062
     Dates: start: 20200408, end: 20200514
  36. DEXAMETHASONE [Concomitant]
     Active Substance: DEXAMETHASONE
     Indication: Stomatitis
     Route: 062
     Dates: start: 20200319
  37. ACMAIN [Concomitant]
     Indication: Nutritional supplementation
     Route: 042
     Dates: start: 20191101, end: 20191105
  38. INOVAN (JAPAN) [Concomitant]
     Indication: End stage renal disease
     Route: 042
     Dates: start: 20191101, end: 20191102
  39. OMEPRAZOLE [Concomitant]
     Active Substance: OMEPRAZOLE
     Indication: Prophylaxis against gastrointestinal ulcer
     Route: 042
     Dates: start: 20191031, end: 20191105
  40. CEFAZOLIN SODIUM [Concomitant]
     Active Substance: CEFAZOLIN SODIUM
     Indication: Infection prophylaxis
     Route: 042
     Dates: start: 20191031, end: 20191103
  41. CALCIUM CHLORIDE\POTASSIUM CHLORIDE\SODIUM ACETATE\SODIUM CHLORIDE [Concomitant]
     Active Substance: CALCIUM CHLORIDE\POTASSIUM CHLORIDE\SODIUM ACETATE\SODIUM CHLORIDE
     Route: 042
     Dates: start: 20191031, end: 20191031
  42. CALCIUM CHLORIDE\POTASSIUM CHLORIDE\SODIUM ACETATE\SODIUM CHLORIDE [Concomitant]
     Active Substance: CALCIUM CHLORIDE\POTASSIUM CHLORIDE\SODIUM ACETATE\SODIUM CHLORIDE
     Route: 042
     Dates: start: 20191101, end: 20191101
  43. CALCIUM CHLORIDE\POTASSIUM CHLORIDE\SODIUM ACETATE\SODIUM CHLORIDE [Concomitant]
     Active Substance: CALCIUM CHLORIDE\POTASSIUM CHLORIDE\SODIUM ACETATE\SODIUM CHLORIDE
     Route: 042
     Dates: start: 20191102, end: 20191102
  44. LENOGRASTIM [Concomitant]
     Active Substance: LENOGRASTIM
     Indication: Haematopoietic stem cell mobilisation
     Route: 042
     Dates: start: 20200110, end: 20200110
  45. LENOGRASTIM [Concomitant]
     Active Substance: LENOGRASTIM
     Route: 042
     Dates: start: 20200114, end: 20200116
  46. LENOGRASTIM [Concomitant]
     Active Substance: LENOGRASTIM
     Route: 042
     Dates: start: 20200122, end: 20200122
  47. DARBEPOETIN ALFA [Concomitant]
     Active Substance: DARBEPOETIN ALFA
     Indication: Nephrogenic anaemia
     Route: 042
     Dates: start: 20200109
  48. FILGRASTIM [Concomitant]
     Active Substance: FILGRASTIM
     Indication: Haematopoietic stem cell mobilisation
     Route: 042
     Dates: start: 20200109, end: 20200109
  49. HEPARIN [Concomitant]
     Active Substance: HEPARIN SODIUM
     Indication: Thrombosis
     Route: 042
     Dates: start: 20191101, end: 20191101
  50. GANCICLOVIR [Concomitant]
     Active Substance: GANCICLOVIR
     Indication: Infection prophylaxis
     Route: 042
     Dates: start: 20200107, end: 20200108
  51. GANCICLOVIR [Concomitant]
     Active Substance: GANCICLOVIR
     Route: 042
     Dates: start: 20200109, end: 20200122
  52. FENTANYL [Concomitant]
     Active Substance: FENTANYL
     Indication: Analgesic therapy
     Route: 042
     Dates: start: 20191031, end: 20191031
  53. REMIFENTANIL [Concomitant]
     Active Substance: REMIFENTANIL
     Indication: Analgesic therapy
     Route: 042
     Dates: start: 20191031
  54. CEFACLOR [Concomitant]
     Active Substance: CEFACLOR
     Route: 048
     Dates: start: 20200813, end: 20200816
  55. PREDONINE [Concomitant]
     Active Substance: PREDNISOLONE
     Route: 048
     Dates: start: 20191012, end: 20191017

REACTIONS (6)
  - Pyrexia [Recovered/Resolved]
  - Faeces soft [Recovered/Resolved]
  - Stomatitis [Recovering/Resolving]
  - Cytomegalovirus infection [Recovering/Resolving]
  - Cytopenia [Recovering/Resolving]
  - Cellulitis [Recovering/Resolving]

NARRATIVE: CASE EVENT DATE: 20191225
